FAERS Safety Report 9860286 (Version 2)
Quarter: 2014Q1

REPORT INFORMATION
  Report Type: Spontaneous
  Country: JP (occurrence: JP)
  Receive Date: 20140201
  Receipt Date: 20140201
  Transmission Date: 20141002
  Serious: Yes (Other)
  Sender: FDA-Public Use
  Company Number: JP-PFIZER INC-2013354080

PATIENT
  Sex: Male
  Weight: 53 kg

DRUGS (6)
  1. MEDROL [Suspect]
     Indication: IMMUNOSUPPRESSANT DRUG THERAPY
     Dosage: 4 MG, 1X/DAY
     Route: 048
  2. ALLERMIST [Concomitant]
     Indication: RHINITIS ALLERGIC
     Dosage: UNK
     Dates: end: 201310
  3. ANTEBATE [Concomitant]
     Indication: RASH
     Dosage: UNK
     Dates: end: 201310
  4. ECLARAN [Concomitant]
     Indication: HAIR GROWTH ABNORMAL
     Dosage: UNK
     Route: 062
     Dates: end: 201310
  5. CELLCEPT [Concomitant]
  6. TACROLIMUS [Concomitant]

REACTIONS (4)
  - Empyema [Unknown]
  - Skin atrophy [Not Recovered/Not Resolved]
  - Chronic sinusitis [Not Recovered/Not Resolved]
  - Herpes zoster [Unknown]
